FAERS Safety Report 24636825 (Version 4)
Quarter: 2025Q2

REPORT INFORMATION
  Report Type: Report from Study
  Country: US (occurrence: US)
  Receive Date: 20241119
  Receipt Date: 20250410
  Transmission Date: 20250717
  Serious: Yes (Hospitalization, Other)
  Sender: TAKEDA
  Company Number: US-TAKEDA-2024TUS114924

PATIENT
  Age: 50 Year
  Sex: Female

DRUGS (2)
  1. HUMAN IMMUNOGLOBULIN G [Suspect]
     Active Substance: HUMAN IMMUNOGLOBULIN G
     Indication: Primary immunodeficiency syndrome
  2. GAMMAGARD LIQUID [Suspect]
     Active Substance: HUMAN IMMUNOGLOBULIN G
     Indication: Primary immunodeficiency syndrome

REACTIONS (12)
  - Pneumonia [Unknown]
  - Pneumothorax [Unknown]
  - Heart disease congenital [Unknown]
  - Neuropathy peripheral [Unknown]
  - Rhinovirus infection [Unknown]
  - Insurance issue [Unknown]
  - Lung disorder [Unknown]
  - Oxygen saturation abnormal [Unknown]
  - Obstruction [Unknown]
  - Sinusitis [Unknown]
  - Chest discomfort [Unknown]
  - Back pain [Unknown]

NARRATIVE: CASE EVENT DATE: 20241210
